FAERS Safety Report 13628283 (Version 2)
Quarter: 2017Q3

REPORT INFORMATION
  Report Type: Spontaneous
  Country: CA (occurrence: CA)
  Receive Date: 20170608
  Receipt Date: 20170706
  Transmission Date: 20171127
  Serious: Yes (Hospitalization, Other)
  Sender: FDA-Public Use
  Company Number: CA-PFIZER INC-2017235633

PATIENT
  Age: 52 Year
  Sex: Female

DRUGS (12)
  1. SULFASALAZINE. [Suspect]
     Active Substance: SULFASALAZINE
     Indication: RHEUMATOID ARTHRITIS
     Dosage: 1000 MG, 2X/DAY
     Route: 048
  2. HYDROXYCHLOROQUINE [Suspect]
     Active Substance: HYDROXYCHLOROQUINE
     Dosage: UNK
  3. PLAQUENIL [Suspect]
     Active Substance: HYDROXYCHLOROQUINE SULFATE
     Dosage: 200 MG, DAILY
     Route: 048
  4. MYOCHRYSINE [Suspect]
     Active Substance: GOLD SODIUM THIOMALATE
     Dosage: 50 MG, WEEKLY
     Route: 030
  5. ACTEMRA [Suspect]
     Active Substance: TOCILIZUMAB
     Dosage: UNK
  6. METHOTREXATE SODIUM. [Suspect]
     Active Substance: METHOTREXATE SODIUM
     Indication: RHEUMATOID ARTHRITIS
     Dosage: 20-25MG , WEEKLY
     Route: 058
  7. ISONIAZID. [Suspect]
     Active Substance: ISONIAZID
     Indication: PROPHYLAXIS
     Dosage: UNK
  8. ARAVA [Suspect]
     Active Substance: LEFLUNOMIDE
     Dosage: 20 MG, 1X/DAY
  9. REMICADE [Suspect]
     Active Substance: INFLIXIMAB
     Dosage: 200 MG, UNK
     Route: 042
     Dates: start: 20160317, end: 20160317
  10. REMICADE [Suspect]
     Active Substance: INFLIXIMAB
     Dosage: 200 MG, UNK
     Dates: start: 20160115
  11. REMICADE [Suspect]
     Active Substance: INFLIXIMAB
     Dosage: 200 MG, UNK
     Route: 042
     Dates: start: 20160302, end: 20160302
  12. ZOSTAVAX [Suspect]
     Active Substance: VARICELLA-ZOSTER VIRUS STRAIN OKA/MERCK LIVE ANTIGEN
     Dosage: UNK, SINGLE
     Dates: start: 201706

REACTIONS (16)
  - Mouth ulceration [Unknown]
  - Abdominal pain upper [Unknown]
  - Hepatic haematoma [Unknown]
  - Lymphadenopathy [Unknown]
  - Fungal infection [Unknown]
  - Renal cyst [Unknown]
  - Drug ineffective [Unknown]
  - Microcytic anaemia [Unknown]
  - Joint swelling [Not Recovered/Not Resolved]
  - Pulmonary mass [Unknown]
  - Pyrexia [Unknown]
  - Headache [Unknown]
  - Escherichia urinary tract infection [Unknown]
  - Neutropenia [Unknown]
  - Hepatic cyst [Unknown]
  - Hepatitis B core antibody positive [Unknown]

NARRATIVE: CASE EVENT DATE: 20151218
